FAERS Safety Report 8218196-2 (Version None)
Quarter: 2012Q1

REPORT INFORMATION
  Report Type: 
  Country: None (occurrence: None)
  Receive Date: 20120319
  Receipt Date: 20120308
  Transmission Date: 20120608
  Serious: Yes (Hospitalization, Other)
  Sender: FDA-Public Use
  Company Number: US-SANOFI-AVENTIS-2012SA006462

PATIENT
  Age: 74 Year
  Sex: Female

DRUGS (2)
  1. SOLOSTAR [Suspect]
  2. LANTUS [Suspect]
     Dosage: DOSE:30 UNIT(S)
     Route: 058

REACTIONS (7)
  - BALANCE DISORDER [None]
  - WEIGHT INCREASED [None]
  - PANCREATECTOMY [None]
  - ABDOMINOPLASTY [None]
  - GAIT DISTURBANCE [None]
  - PAIN IN EXTREMITY [None]
  - INJECTION SITE PAIN [None]
